FAERS Safety Report 25623153 (Version 1)
Quarter: 2025Q3

REPORT INFORMATION
  Report Type: Report from Study
  Country: US (occurrence: US)
  Receive Date: 20250730
  Receipt Date: 20250730
  Transmission Date: 20251021
  Serious: Yes (Death, Hospitalization, Other)
  Sender: PFIZER
  Company Number: US-PFIZER INC-202500031270

PATIENT
  Age: 87 Year
  Sex: Male

DRUGS (2)
  1. VYNDAMAX [Suspect]
     Active Substance: TAFAMIDIS
     Dosage: 61 MG, 1 CAPSULE IN THE MORNING
     Route: 048
     Dates: start: 20250117
  2. ALLOPURINOL [Concomitant]
     Active Substance: ALLOPURINOL

REACTIONS (7)
  - Death [Fatal]
  - Heart rate abnormal [Unknown]
  - Heart rate irregular [Unknown]
  - Dyspnoea [Unknown]
  - Dizziness postural [Unknown]
  - Fatigue [Unknown]
  - Product dose omission issue [Unknown]
